FAERS Safety Report 7785309-6 (Version None)
Quarter: 2011Q3

REPORT INFORMATION
  Report Type: 
  Country: None (occurrence: None)
  Receive Date: 20110929
  Receipt Date: 20110927
  Transmission Date: 20111222
  Serious: No
  Sender: FDA-Public Use
  Company Number: US-PFIZER INC-2011185052

PATIENT
  Sex: Female

DRUGS (4)
  1. NEURONTIN [Concomitant]
     Indication: POST HERPETIC NEURALGIA
     Dosage: 300 MG, 2X/DAY
  2. LYRICA [Suspect]
     Indication: POST HERPETIC NEURALGIA
  3. SYNTHROID [Concomitant]
     Indication: HYPOTHYROIDISM
     Dosage: 50 MG, UNK
     Dates: start: 20080901
  4. LYRICA [Suspect]
     Indication: NEUROPATHY PERIPHERAL
     Dosage: 75 MG, UNK
     Route: 048
     Dates: start: 20040301, end: 20110701

REACTIONS (8)
  - DRY MOUTH [None]
  - PHOTOPHOBIA [None]
  - BURNING SENSATION [None]
  - RASH [None]
  - MUSCLE SPASMS [None]
  - NAUSEA [None]
  - DIARRHOEA [None]
  - DIZZINESS [None]
